FAERS Safety Report 8958938 (Version 1)
Quarter: 2012Q4

REPORT INFORMATION
  Report Type: 
  Country: PA (occurrence: PA)
  Receive Date: 20121212
  Receipt Date: 20121212
  Transmission Date: 20130627
  Serious: Yes (Other)
  Sender: FDA-Public Use
  Company Number: PA-ROCHE-CID000000002222108

PATIENT
  Age: 66 Year
  Sex: Male
  Weight: 83 kg

DRUGS (3)
  1. BEVACIZUMAB [Suspect]
     Indication: COLON CANCER METASTATIC
     Route: 042
  2. XELODA [Concomitant]
     Indication: COLON CANCER STAGE IV
     Route: 048
  3. OXALIPLATINO [Concomitant]
     Indication: COLON CANCER STAGE IV
     Route: 042
     Dates: end: 20121011

REACTIONS (1)
  - Leukoencephalopathy [Recovered/Resolved with Sequelae]
